FAERS Safety Report 8055689-5 (Version None)
Quarter: 2012Q1

REPORT INFORMATION
  Report Type: 
  Country: None (occurrence: None)
  Receive Date: 20120119
  Receipt Date: 20120109
  Transmission Date: 20120608
  Serious: Yes (Death, Other)
  Sender: FDA-Public Use
  Company Number: DE-ELI_LILLY_AND_COMPANY-DE201111006579

PATIENT
  Age: 40 Year
  Sex: Male

DRUGS (7)
  1. TILIDIN [Concomitant]
  2. OPIPRAMOL [Concomitant]
     Dosage: UNK
     Dates: start: 20101001
  3. FORTEO [Suspect]
     Indication: OSTEOPOROSIS
     Dosage: UNK, QD
     Route: 058
     Dates: start: 20100517, end: 20110801
  4. MARCUMAR [Concomitant]
     Dosage: UNK
     Dates: start: 20101101
  5. REMICUT [Concomitant]
  6. NICOTINE [Concomitant]
  7. CALCIUM W/VITAMIN D NOS [Concomitant]

REACTIONS (2)
  - CONVULSION [None]
  - DEATH [None]
